FAERS Safety Report 8934609 (Version 1)
Quarter: 2012Q4

REPORT INFORMATION
  Report Type: Report from Study
  Country: US (occurrence: US)
  Receive Date: 20121129
  Receipt Date: 20121129
  Transmission Date: 20130627
  Serious: Yes (Other)
  Sender: FDA-Public Use
  Company Number: US-JNJFOC-20121111236

PATIENT
  Age: 56 None
  Sex: Female
  Weight: 96.16 kg

DRUGS (9)
  1. REMICADE [Suspect]
     Indication: PSORIATIC ARTHROPATHY
     Route: 042
     Dates: start: 201101, end: 201108
  2. REMICADE [Suspect]
     Indication: PSORIATIC ARTHROPATHY
     Route: 042
  3. REMICADE [Suspect]
     Indication: PSORIATIC ARTHROPATHY
     Dosage: Strength 100mg
     Route: 042
     Dates: end: 201012
  4. REMICADE [Suspect]
     Indication: PSORIATIC ARTHROPATHY
     Route: 042
     Dates: start: 2011
  5. REMICADE [Suspect]
     Indication: PSORIATIC ARTHROPATHY
     Dosage: Started Remicade over 3 years ago
     Route: 042
     Dates: start: 2009
  6. CIMZIA [Suspect]
     Indication: PSORIATIC ARTHROPATHY
     Route: 058
     Dates: start: 201108, end: 2011
  7. CIMZIA [Suspect]
     Indication: PSORIATIC ARTHROPATHY
     Route: 058
  8. ZOLPIDEM [Concomitant]
     Indication: SLEEP DISORDER
     Route: 048
  9. CYCLOBENZAPRINE [Concomitant]
     Indication: MUSCLE RELAXANT THERAPY
     Route: 048

REACTIONS (5)
  - Arthritis [Recovered/Resolved]
  - Type 2 diabetes mellitus [Unknown]
  - Drug ineffective [Unknown]
  - Neuralgia [Unknown]
  - Aphonia [Unknown]
